FAERS Safety Report 12367055 (Version 3)
Quarter: 2017Q1

REPORT INFORMATION
  Report Type: Spontaneous
  Country: JP (occurrence: JP)
  Receive Date: 20160513
  Receipt Date: 20170329
  Transmission Date: 20170428
  Serious: Yes (Hospitalization, Other)
  Sender: FDA-Public Use
  Company Number: JP-HORIZON-BUP-0056-2016

PATIENT
  Age: 28 Year
  Sex: Male
  Weight: 65.3 kg

DRUGS (2)
  1. ARGI-U [Concomitant]
     Indication: ORNITHINE TRANSCARBAMOYLASE DEFICIENCY
     Dosage: 24 G DAILY
     Route: 048
  2. BUPHENYL [Suspect]
     Active Substance: SODIUM PHENYLBUTYRATE
     Indication: ORNITHINE TRANSCARBAMOYLASE DEFICIENCY
     Dosage: 21 TABLETS DAILY SINCE 08-MAR-2016; INITIALLY 15 TABLETS DAILY
     Route: 048
     Dates: start: 20151208

REACTIONS (1)
  - Hyperammonaemia [Recovered/Resolved]

NARRATIVE: CASE EVENT DATE: 20160209
